FAERS Safety Report 19996124 (Version 2)
Quarter: 2021Q4

REPORT INFORMATION
  Report Type: Spontaneous
  Country: US (occurrence: US)
  Receive Date: 20211026
  Receipt Date: 20211129
  Transmission Date: 20220304
  Serious: No
  Sender: FDA-Public Use
  Company Number: US-GLAXOSMITHKLINE-USCH2021074242

PATIENT

DRUGS (2)
  1. ADVIL PM [Suspect]
     Active Substance: DIPHENHYDRAMINE CITRATE\IBUPROFEN
     Indication: Product used for unknown indication
     Dosage: UNK
  2. TUMS EX [Suspect]
     Active Substance: CALCIUM CARBONATE
     Indication: Viral infection
     Dosage: UNK

REACTIONS (5)
  - Drug tolerance [Unknown]
  - Incorrect dosage administered [Unknown]
  - Vomiting [Unknown]
  - Product use in unapproved indication [Unknown]
  - Drug ineffective for unapproved indication [Unknown]
